FAERS Safety Report 6403543-4 (Version None)
Quarter: 2009Q4

REPORT INFORMATION
  Report Type: 
  Country: None (occurrence: None)
  Receive Date: 20091013
  Receipt Date: 20091002
  Transmission Date: 20100525
  Serious: Yes (Death)
  Sender: FDA-Public Use
  Company Number: 2009010753

PATIENT
  Age: 35 Year
  Sex: Male
  Weight: 63 kg

DRUGS (6)
  1. EFFENTORA           (TABLETS) [Suspect]
     Indication: CANCER PAIN
     Dosage: (400 MCG),BU
     Route: 002
     Dates: start: 20090921, end: 20090926
  2. FENTANYL [Suspect]
     Indication: CANCER PAIN
     Dosage: (125 MCG),TRANSDERMAL ; (150 MCG)
     Route: 062
  3. METASTROL ACETATE (MEGESTROL ACETATE) [Concomitant]
  4. OMEPRAZOLE [Concomitant]
  5. HEPAREGAN (TIMONACIC) [Concomitant]
  6. NYSTATYNA (NYSTATIN) [Concomitant]

REACTIONS (12)
  - ACCIDENTAL OVERDOSE [None]
  - ASTHENIA [None]
  - COUGH [None]
  - FLUID INTAKE REDUCED [None]
  - HYPOVOLAEMIA [None]
  - INAPPROPRIATE SCHEDULE OF DRUG ADMINISTRATION [None]
  - LOCALISED INTRAABDOMINAL FLUID COLLECTION [None]
  - MALIGNANT NEOPLASM PROGRESSION [None]
  - METASTASES TO LIVER [None]
  - METASTASES TO LUNG [None]
  - PAIN [None]
  - SOMNOLENCE [None]
